FAERS Safety Report 4386290-2 (Version None)
Quarter: 2004Q2

REPORT INFORMATION
  Report Type: 
  Country: None (occurrence: None)
  Receive Date: 20040623
  Receipt Date: 20040609
  Transmission Date: 20050107
  Serious: No
  Sender: FDA-Public Use
  Company Number: 2004AP03148

PATIENT
  Age: 32 Year
  Sex: Female

DRUGS (3)
  1. IRESSA [Suspect]
     Indication: SQUAMOUS CELL CARCINOMA
     Dosage: 250 MG DAILY PO
     Route: 048
  2. CARBOPLATIN [Concomitant]
  3. PACLITAXEL [Concomitant]

REACTIONS (1)
  - BRONCHOPLEURAL FISTULA [None]
